FAERS Safety Report 12636624 (Version 1)
Quarter: 2016Q3

REPORT INFORMATION
  Report Type: Spontaneous
  Country: US (occurrence: US)
  Receive Date: 20160809
  Receipt Date: 20160809
  Transmission Date: 20161109
  Serious: Yes (Other)
  Sender: FDA-Public Use
  Company Number: US-PFIZER INC-2016376062

PATIENT
  Sex: Female

DRUGS (1)
  1. PREMPRO [Suspect]
     Active Substance: ESTROGENS, CONJUGATED\MEDROXYPROGESTERONE ACETATE
     Indication: HOT FLUSH
     Dosage: 1 DF, 1X/DAY (CONJUGATED ESTROGENS-0.625MG/ MEDROXYPROGESTERONE ACETATE-2.5MG, ORALLY, 1 PILL A DAY)
     Route: 048
     Dates: start: 20160720, end: 201607

REACTIONS (5)
  - Weight increased [Recovering/Resolving]
  - Constipation [Recovering/Resolving]
  - Dizziness [Recovering/Resolving]
  - Nausea [Recovering/Resolving]
  - Micturition disorder [Recovering/Resolving]

NARRATIVE: CASE EVENT DATE: 20160721
